FAERS Safety Report 7243532-3 (Version None)
Quarter: 2011Q1

REPORT INFORMATION
  Report Type: 
  Country: None (occurrence: None)
  Receive Date: 20110125
  Receipt Date: 20110117
  Transmission Date: 20110831
  Serious: Yes (Hospitalization, Other)
  Sender: FDA-Public Use
  Company Number: FR-B.I. PHARMACEUTICALS,INC./RIDGEFIELD-2010-FF-00783FF

PATIENT
  Sex: Female
  Weight: 54 kg

DRUGS (8)
  1. SPECIAFOLDINE [Concomitant]
     Indication: ANAEMIA
     Dates: start: 20100924
  2. PARACETAMOL [Concomitant]
     Dosage: 4 G
  3. VENLAFAXINE [Concomitant]
     Indication: DEPRESSION
     Dosage: 75 MG
  4. ALPRAZOLAM [Concomitant]
     Dosage: 0.5 MG
  5. INIPOMP [Concomitant]
  6. PRADAXA [Suspect]
     Indication: KNEE ARTHROPLASTY
     Dosage: 150 MG
     Route: 048
     Dates: start: 20100908, end: 20100928
  7. FUMAFER [Concomitant]
     Indication: ANAEMIA
     Dates: start: 20100923
  8. FURADANTINE [Concomitant]
     Dosage: 350 MG
     Route: 048
     Dates: start: 20100924

REACTIONS (3)
  - DRUG INEFFECTIVE [None]
  - URINARY TRACT INFECTION [None]
  - DEEP VEIN THROMBOSIS [None]
